FAERS Safety Report 22217891 (Version 1)
Quarter: 2023Q2

REPORT INFORMATION
  Report Type: Spontaneous
  Country: FR (occurrence: FR)
  Receive Date: 20230417
  Receipt Date: 20230417
  Transmission Date: 20230722
  Serious: Yes (Hospitalization)
  Sender: FDA-Public Use
  Company Number: FR-WYE-G03005309

PATIENT
  Age: 9 Year
  Sex: Male
  Weight: 25 kg

DRUGS (11)
  1. TYGACIL [Suspect]
     Active Substance: TIGECYCLINE
     Indication: Enterobacter infection
     Dosage: 100 MG (LOADING DOSE)
     Route: 042
     Dates: start: 20081203, end: 20090130
  2. TYGACIL [Suspect]
     Active Substance: TIGECYCLINE
     Indication: Osteomyelitis bacterial
     Dosage: 50 MG, DAILY (50 MG 1 TIME EVERY 12 HOURS)
     Route: 042
     Dates: start: 20090210, end: 20090228
  3. TYGACIL [Suspect]
     Active Substance: TIGECYCLINE
     Indication: Sepsis syndrome
  4. COLISTIMETHATE SODIUM [Suspect]
     Active Substance: COLISTIMETHATE SODIUM
     Indication: Enterobacter infection
     Dosage: 3.75 MIU TOTAL DAILY
     Route: 042
     Dates: start: 20081118, end: 20081217
  5. COLISTIMETHATE SODIUM [Suspect]
     Active Substance: COLISTIMETHATE SODIUM
     Indication: Osteomyelitis bacterial
     Dosage: 5 MIU TOTAL DAILY
     Route: 042
     Dates: start: 20081218, end: 20090224
  6. COLISTIMETHATE SODIUM [Suspect]
     Active Substance: COLISTIMETHATE SODIUM
     Indication: Sepsis syndrome
     Dosage: 2.5 MIU TOTAL DAILY
     Route: 042
     Dates: start: 20090225, end: 20090228
  7. COLISTIMETHATE SODIUM [Suspect]
     Active Substance: COLISTIMETHATE SODIUM
     Dosage: UNKNOWN; TAPERED DOSE
     Route: 042
     Dates: start: 20090301
  8. AMIKACIN [Suspect]
     Active Substance: AMIKACIN
     Indication: Sepsis syndrome
     Dosage: 60 MG/KG/D
     Dates: start: 2008
  9. RIFAMPIN [Suspect]
     Active Substance: RIFAMPIN
     Indication: Sepsis syndrome
     Dosage: 25MG/KG/D
     Route: 042
     Dates: start: 20081130, end: 20090210
  10. PRIMAXIN IV [Concomitant]
     Active Substance: CILASTATIN SODIUM\IMIPENEM
     Dosage: UNK
     Route: 065
     Dates: start: 200810, end: 2008
  11. CIPROFLOXACIN [Concomitant]
     Active Substance: CIPROFLOXACIN
     Dosage: UNK
     Route: 065
     Dates: start: 200810, end: 2008

REACTIONS (6)
  - Bilirubin conjugated increased [Recovered/Resolved]
  - Oedematous pancreatitis [Recovered/Resolved]
  - Ileus [Recovered/Resolved]
  - Gamma-glutamyltransferase [Recovered/Resolved]
  - Alanine aminotransferase increased [Unknown]
  - Condition aggravated [Unknown]

NARRATIVE: CASE EVENT DATE: 20081222
